FAERS Safety Report 4847933-X (Version None)
Quarter: 2005Q4

REPORT INFORMATION
  Report Type: 
  Country: None (occurrence: None)
  Receive Date: 20051207
  Receipt Date: 20051207
  Transmission Date: 20060501
  Serious: Yes (Hospitalization)
  Sender: FDA-Public Use
  Company Number: None

PATIENT
  Sex: Male
  Weight: 84.54 kg

DRUGS (1)
  1. VELCADE [Suspect]
     Indication: GLIOBLASTOMA MULTIFORME
     Dosage: 145 MG   DAYS 1,4,8, 11  Q3W    IV
     Route: 042
     Dates: start: 20051114, end: 20051125

REACTIONS (1)
  - SYNCOPE [None]
